FAERS Safety Report 12212738 (Version 2)
Quarter: 2017Q2

REPORT INFORMATION
  Report Type: Spontaneous
  Country: US (occurrence: US)
  Receive Date: 20160328
  Receipt Date: 20170404
  Transmission Date: 20170830
  Serious: Yes (Other)
  Sender: FDA-Public Use
  Company Number: US-STRIDES ARCOLAB LIMITED-2016SP000494

PATIENT

DRUGS (10)
  1. CINACALCET [Concomitant]
     Active Substance: CINACALCET
     Dosage: 0.6 MG/KG/DAY
     Route: 065
  2. CALCIUM [Suspect]
     Active Substance: CALCIUM
     Indication: PSEUDOHYPOPARATHYROIDISM
     Dosage: 1200 MG PER DAY
     Route: 065
  3. CALCIUM [Suspect]
     Active Substance: CALCIUM
     Dosage: 3000 MG PER DAY
     Route: 065
  4. CALCIUM [Suspect]
     Active Substance: CALCIUM
     Dosage: 1800 MG PER DAY
     Route: 065
  5. CINACALCET [Concomitant]
     Active Substance: CINACALCET
     Indication: PSEUDOHYPOPARATHYROIDISM
     Dosage: 0.8 MG/KG/DAY IN TWO DIVIDED DOSES
     Route: 065
  6. THIAZIDE [Concomitant]
     Active Substance: UNSPECIFIED INGREDIENT
     Indication: PSEUDOHYPOPARATHYROIDISM
     Dosage: UNK, UNKNOWN
     Route: 065
  7. CALCITRIOL. [Suspect]
     Active Substance: CALCITRIOL
     Indication: PSEUDOHYPOPARATHYROIDISM
     Dosage: 0.25 MCG PER DAY
     Route: 065
  8. CALCIUM [Suspect]
     Active Substance: CALCIUM
     Dosage: 2400 MG PER DAY
     Route: 065
  9. SEVELAMER CARBONATE. [Concomitant]
     Active Substance: SEVELAMER CARBONATE
     Indication: PSEUDOHYPOPARATHYROIDISM
     Dosage: UNK, UNKNOWN
     Route: 065
  10. CALCITRIOL. [Suspect]
     Active Substance: CALCITRIOL
     Dosage: 0.5 MCG PER DAY
     Route: 065

REACTIONS (1)
  - Drug ineffective [Unknown]
